FAERS Safety Report 5929416-9 (Version None)
Quarter: 2008Q4

REPORT INFORMATION
  Report Type: 
  Country: None (occurrence: None)
  Receive Date: 20081024
  Receipt Date: 20081010
  Transmission Date: 20090506
  Serious: Yes (Death, Hospitalization)
  Sender: FDA-Public Use
  Company Number: FR-GENENTECH-270000

PATIENT
  Sex: Male

DRUGS (3)
  1. BEVACIZUMAB [Suspect]
     Indication: COLORECTAL CANCER METASTATIC
     Dosage: 525 MG, Q3W
     Route: 042
     Dates: start: 20070329
  2. CAPECITABINE [Suspect]
     Indication: COLORECTAL CANCER METASTATIC
     Dosage: 1752 MG, D1-14/Q3W
     Route: 048
     Dates: start: 20070329
  3. IRINOTECAN HYDROCHLORIDE [Suspect]
     Indication: COLORECTAL CANCER METASTATIC
     Dosage: 270 MG, Q3W
     Route: 042
     Dates: start: 20070329

REACTIONS (1)
  - GENERAL PHYSICAL HEALTH DETERIORATION [None]
